FAERS Safety Report 23678195 (Version 3)
Quarter: 2025Q2

REPORT INFORMATION
  Report Type: Spontaneous
  Country: US (occurrence: US)
  Receive Date: 20240327
  Receipt Date: 20250620
  Transmission Date: 20250716
  Serious: Yes (Other)
  Sender: SUNOVION
  Company Number: US-UROVANT SCIENCES GMBH-202403-URV-000431

PATIENT

DRUGS (2)
  1. GEMTESA [Suspect]
     Active Substance: VIBEGRON
     Indication: Pollakiuria
     Dosage: 1 TAB, QD
     Route: 048
     Dates: start: 20240320
  2. GEMTESA [Suspect]
     Active Substance: VIBEGRON
     Indication: Micturition urgency

REACTIONS (2)
  - Haemorrhage urinary tract [Not Recovered/Not Resolved]
  - Drug ineffective [Unknown]

NARRATIVE: CASE EVENT DATE: 20240321
